FAERS Safety Report 5424741-2 (Version None)
Quarter: 2007Q3

REPORT INFORMATION
  Report Type: 
  Country: None (occurrence: None)
  Receive Date: 20070822
  Receipt Date: 20070726
  Transmission Date: 20080115
  Serious: Yes (Hospitalization)
  Sender: FDA-Public Use
  Company Number: 2007S1007005

PATIENT
  Age: 45 Year
  Sex: Male
  Weight: 83.9154 kg

DRUGS (4)
  1. FENTANYL TRANSDERMAL SYSTEM [Suspect]
     Indication: BACK PAIN
     Dosage: 50 UG/HR; EVERY OTHER DAY; TRANSDERMAL
     Route: 062
     Dates: start: 20070101
  2. TESTIM [Concomitant]
  3. CITALOPRAM HYDROBROMIDE [Concomitant]
  4. LYRICA [Concomitant]

REACTIONS (6)
  - ASPIRATION [None]
  - MALAISE [None]
  - NOSOCOMIAL INFECTION [None]
  - PHARMACEUTICAL PRODUCT COMPLAINT [None]
  - PNEUMONIA [None]
  - SEPSIS [None]
